FAERS Safety Report 22151253 (Version 1)
Quarter: 2023Q1

REPORT INFORMATION
  Report Type: Spontaneous
  Country: US (occurrence: US)
  Receive Date: 20230329
  Receipt Date: 20230329
  Transmission Date: 20230418
  Serious: Yes (Death, Life-Threatening, Hospitalization)
  Sender: FDA-Public Use
  Company Number: US-drreddys-LIT/USA/23/0162970

PATIENT
  Age: 42 Year
  Sex: Female

DRUGS (5)
  1. DOBUTAMINE HYDROCHLORIDE [Suspect]
     Active Substance: DOBUTAMINE HYDROCHLORIDE
     Indication: Resuscitation
  2. EPINEPHRINE [Suspect]
     Active Substance: EPINEPHRINE
     Indication: Resuscitation
  3. SODIUM BICARBONATE [Suspect]
     Active Substance: SODIUM BICARBONATE
     Indication: Resuscitation
  4. VASOPRESSIN [Suspect]
     Active Substance: VASOPRESSIN
     Indication: Resuscitation
  5. DOPAMINE [Suspect]
     Active Substance: DOPAMINE HYDROCHLORIDE
     Indication: Resuscitation

REACTIONS (3)
  - Anaphylactic reaction [Fatal]
  - Multiple organ dysfunction syndrome [Unknown]
  - Drug ineffective [Unknown]
